FAERS Safety Report 12390466 (Version 2)
Quarter: 2016Q2

REPORT INFORMATION
  Report Type: Spontaneous
  Country: FR (occurrence: FR)
  Receive Date: 20160520
  Receipt Date: 20160608
  Transmission Date: 20160815
  Serious: Yes (Hospitalization)
  Sender: FDA-Public Use
  Company Number: FR-BAYER-2016-095980

PATIENT
  Age: 57 Year
  Sex: Female
  Weight: 53 kg

DRUGS (2)
  1. ULTRAVIST [Suspect]
     Active Substance: IOPROMIDE
     Indication: COMPUTERISED TOMOGRAM
     Dosage: 150 ML, ONCE
     Route: 042
     Dates: start: 20160324, end: 20160324
  2. ULTRAVIST [Suspect]
     Active Substance: IOPROMIDE
     Indication: COMPUTERISED TOMOGRAM
     Dosage: 50 ML, ONCE
     Route: 042
     Dates: start: 20160324, end: 20160324

REACTIONS (3)
  - Dermatitis exfoliative [Recovered/Resolved]
  - Contrast media allergy [None]
  - Conjunctivitis [Recovered/Resolved]

NARRATIVE: CASE EVENT DATE: 20160324
